FAERS Safety Report 4674470-8 (Version None)
Quarter: 2005Q2

REPORT INFORMATION
  Report Type: 
  Country: None (occurrence: None)
  Receive Date: 20050526
  Receipt Date: 20050516
  Transmission Date: 20051028
  Serious: Yes (Hospitalization)
  Sender: FDA-Public Use
  Company Number: US-AMGEN-US134608

PATIENT
  Sex: Female

DRUGS (4)
  1. EPOGEN [Suspect]
     Indication: PRE-EXISTING DISEASE
     Route: 058
     Dates: start: 20050101
  2. INTERFERON [Concomitant]
  3. RIBAVIRIN [Concomitant]
  4. CLONIDINE [Concomitant]

REACTIONS (1)
  - HAEMOGLOBIN DECREASED [None]
